FAERS Safety Report 13766845 (Version 1)
Quarter: 2017Q3

REPORT INFORMATION
  Report Type: Spontaneous
  Country: US (occurrence: US)
  Receive Date: 20170719
  Receipt Date: 20170719
  Transmission Date: 20171127
  Serious: No
  Sender: FDA-Public Use
  Company Number: US-PFIZER INC-2017305775

PATIENT
  Sex: Female

DRUGS (4)
  1. CIPROFLOXACIN. [Suspect]
     Active Substance: CIPROFLOXACIN
     Dosage: 1000 MG, DAILY (500MG 2 TABS )
  2. PROMETHAZINE HCL [Suspect]
     Active Substance: PROMETHAZINE HYDROCHLORIDE
     Indication: COUGH
     Dosage: 10 ML, AS NEEDED (Q6H )
  3. METHOTREXATE SODIUM. [Suspect]
     Active Substance: METHOTREXATE SODIUM
     Dosage: 20 MG, WEEKLY
  4. FUROSEMIDE. [Suspect]
     Active Substance: FUROSEMIDE
     Dosage: 80 MG, DAILY

REACTIONS (28)
  - Red blood cell sedimentation rate increased [Unknown]
  - Upper respiratory tract infection [Unknown]
  - Musculoskeletal pain [Unknown]
  - Depression [Unknown]
  - Swelling [Unknown]
  - Oropharyngeal pain [Unknown]
  - Tenderness [Unknown]
  - Fatigue [Unknown]
  - Anxiety [Unknown]
  - Vitamin D decreased [Unknown]
  - Tooth infection [Unknown]
  - Hypoaesthesia [Unknown]
  - Irritable bowel syndrome [Unknown]
  - Blood glucose increased [Unknown]
  - Dysphonia [Unknown]
  - Pain [Unknown]
  - Vomiting [Unknown]
  - Ear pain [Unknown]
  - Musculoskeletal stiffness [Unknown]
  - Sleep disorder [Unknown]
  - Crepitations [Unknown]
  - Arthralgia [Unknown]
  - Back pain [Unknown]
  - Paraesthesia [Unknown]
  - Headache [Unknown]
  - Nausea [Unknown]
  - Dyspepsia [Unknown]
  - Blood creatinine increased [Unknown]
